FAERS Safety Report 7391458-7 (Version None)
Quarter: 2011Q2

REPORT INFORMATION
  Report Type: 
  Country: None (occurrence: None)
  Receive Date: 20110404
  Receipt Date: 20101001
  Transmission Date: 20111010
  Serious: Yes (Other)
  Sender: FDA-Public Use
  Company Number: US-BAYER-201022778NA

PATIENT
  Sex: Female
  Weight: 107 kg

DRUGS (5)
  1. YAZ [Suspect]
     Indication: ACNE
     Dosage: UNK
     Dates: start: 20071001, end: 20080201
  2. UNCODEABLE ^UNCLASSIFIABLE^ [Concomitant]
     Dosage: UNK
     Dates: start: 20070101
  3. YAZ [Suspect]
     Indication: CONTRACEPTION
  4. YASMIN [Suspect]
     Indication: ACNE
     Dates: start: 20071001
  5. ASCORBIC ACID [Concomitant]

REACTIONS (11)
  - GALLBLADDER DISORDER [None]
  - CHOLELITHIASIS [None]
  - MENTAL DISORDER [None]
  - GALLBLADDER CHOLESTEROLOSIS [None]
  - BILIARY COLIC [None]
  - GASTROINTESTINAL DISORDER [None]
  - CHOLECYSTITIS CHRONIC [None]
  - HEPATIC CYST [None]
  - HEPATIC LESION [None]
  - RENAL CYST [None]
  - RENAL INJURY [None]
